FAERS Safety Report 16338569 (Version 1)
Quarter: 2019Q2

REPORT INFORMATION
  Report Type: Spontaneous
  Country: ES (occurrence: ES)
  Receive Date: 20190521
  Receipt Date: 20190521
  Transmission Date: 20190711
  Serious: Yes (Death)
  Sender: FDA-Public Use
  Company Number: ES-FRESENIUS KABI-FK201905740

PATIENT
  Age: 47 Year
  Sex: Male

DRUGS (1)
  1. ARGATROBAN (MAUFACTURER UNKNOWN) [Suspect]
     Active Substance: ARGATROBAN
     Indication: ANTICOAGULANT THERAPY
     Route: 065

REACTIONS (2)
  - Colitis ischaemic [Fatal]
  - Embolism [Fatal]
